FAERS Safety Report 8188970-X (Version None)
Quarter: 2012Q1

REPORT INFORMATION
  Report Type: 
  Country: None (occurrence: None)
  Receive Date: 20120306
  Receipt Date: 20120228
  Transmission Date: 20120608
  Serious: Yes (Other)
  Sender: FDA-Public Use
  Company Number: US-BRISTOL-MYERS SQUIBB COMPANY-16423444

PATIENT
  Sex: Female

DRUGS (1)
  1. ORENCIA [Suspect]
     Indication: RHEUMATOID ARTHRITIS
     Dosage: DURATION: POSSIBLY OVER A YEAR. INTERRUPTED AND RETURNED BACK, LAST INF: 14FEB12.
     Route: 042

REACTIONS (1)
  - CROHN'S DISEASE [None]
